FAERS Safety Report 23422096 (Version 3)
Quarter: 2024Q1

REPORT INFORMATION
  Report Type: Other
  Country: US (occurrence: None)
  Receive Date: 20240119
  Receipt Date: 20240201
  Transmission Date: 20240409
  Serious: Yes (Death, Hospitalization)
  Sender: FDA-Public Use
  Company Number: US-ROCHE-3494324

PATIENT
  Age: 63 Year
  Sex: Male

DRUGS (1)
  1. EVRYSDI [Suspect]
     Active Substance: RISDIPLAM
     Indication: Spinal muscular atrophy
     Dosage: STRENGTH: 0.75 MG/ML
     Route: 048
     Dates: start: 20201111

REACTIONS (8)
  - Abdominal pain upper [Fatal]
  - Asthenia [Fatal]
  - Somnolence [Fatal]
  - Renal failure [Fatal]
  - Hypotension [Fatal]
  - Blood iron decreased [Fatal]
  - White blood cell count increased [Unknown]
  - Pancreas infection [Unknown]

NARRATIVE: CASE EVENT DATE: 20231101
